FAERS Safety Report 8828536 (Version 1)
Quarter: 2012Q4

REPORT INFORMATION
  Report Type: 
  Country: US (occurrence: US)
  Receive Date: 20121005
  Receipt Date: 20121005
  Transmission Date: 20130627
  Serious: Yes (Hospitalization)
  Sender: FDA-Public Use
  Company Number: US-SANOFI-AVENTIS-2012SA070435

PATIENT
  Age: 50 Year
  Sex: Female
  Weight: 74.83 kg

DRUGS (15)
  1. AMBIEN [Suspect]
     Indication: INSOMNIA
     Route: 048
     Dates: end: 201208
  2. TAXOL [Suspect]
     Indication: BREAST CANCER
     Route: 041
     Dates: start: 20120822, end: 20120822
  3. TAXOL [Suspect]
     Indication: OVARIAN CANCER
     Route: 041
     Dates: start: 20120822, end: 20120822
  4. TAXOL [Suspect]
     Indication: BREAST CANCER
     Route: 041
  5. TAXOL [Suspect]
     Indication: OVARIAN CANCER
     Route: 041
  6. TAXOL [Suspect]
     Indication: BREAST CANCER
     Route: 041
  7. TAXOL [Suspect]
     Indication: OVARIAN CANCER
     Route: 041
  8. TAXOL [Suspect]
     Indication: BREAST CANCER
     Route: 041
     Dates: start: 20120716, end: 20120716
  9. TAXOL [Suspect]
     Indication: OVARIAN CANCER
     Route: 041
     Dates: start: 20120716, end: 20120716
  10. MORPHINE SULFATE [Suspect]
     Indication: PAIN
     Route: 065
     Dates: end: 20120827
  11. METHADONE [Concomitant]
     Indication: PAIN
  12. NORTRIPTYLINE [Concomitant]
  13. CLONOPIN [Concomitant]
  14. COMPAZINE [Concomitant]
  15. DOCUSATE SODIUM W/SENNA [Concomitant]

REACTIONS (12)
  - Mental status changes [Recovered/Resolved]
  - Confusional state [Recovered/Resolved]
  - Disorientation [Recovered/Resolved]
  - Fatigue [Recovered/Resolved]
  - Neurological symptom [Recovered/Resolved]
  - Dysphemia [Not Recovered/Not Resolved]
  - Muscle twitching [Not Recovered/Not Resolved]
  - Trismus [Unknown]
  - Fall [Unknown]
  - Hypotension [Recovering/Resolving]
  - Amnesia [Unknown]
  - Overdose [Unknown]
